FAERS Safety Report 18212287 (Version 2)
Quarter: 2020Q3

REPORT INFORMATION
  Report Type: Report from Study
  Country: CO (occurrence: CO)
  Receive Date: 20200831
  Receipt Date: 20200928
  Transmission Date: 20201103
  Serious: Yes (Hospitalization)
  Sender: FDA-Public Use
  Company Number: NVSC2020CO185345

PATIENT
  Sex: Female

DRUGS (2)
  1. REVOLADE [Suspect]
     Active Substance: ELTROMBOPAG
     Dosage: 25 MG
     Route: 048
  2. REVOLADE [Suspect]
     Active Substance: ELTROMBOPAG
     Indication: IMMUNE THROMBOCYTOPENIA
     Dosage: 50 MG, QD
     Route: 048
     Dates: start: 202005

REACTIONS (14)
  - Headache [Unknown]
  - Wrong technique in product usage process [Unknown]
  - Feeling abnormal [Unknown]
  - Alopecia [Unknown]
  - Gastritis [Unknown]
  - Platelet count decreased [Unknown]
  - Off label use [Unknown]
  - Dizziness [Unknown]
  - Drug intolerance [Unknown]
  - Rash [Unknown]
  - Swelling [Unknown]
  - Vomiting [Unknown]
  - Crying [Unknown]
  - Abdominal discomfort [Unknown]
